FAERS Safety Report 16668064 (Version 1)
Quarter: 2019Q3

REPORT INFORMATION
  Report Type: Spontaneous
  Country: US (occurrence: US)
  Receive Date: 20190804
  Receipt Date: 20190804
  Transmission Date: 20191004
  Serious: Yes (Death)
  Sender: FDA-Public Use
  Company Number: None

PATIENT
  Age: 30 Year
  Sex: Male
  Weight: 85.5 kg

DRUGS (1)
  1. KRATOM [Suspect]
     Active Substance: HERBALS\MITRAGYNINE
     Indication: ANXIOLYTIC THERAPY
     Route: 048
     Dates: start: 20190506, end: 20190507

REACTIONS (2)
  - Toxicity to various agents [None]
  - Accidental death [None]

NARRATIVE: CASE EVENT DATE: 20190508
